FAERS Safety Report 20130311 (Version 1)
Quarter: 2021Q4

REPORT INFORMATION
  Report Type: Spontaneous
  Country: US (occurrence: US)
  Receive Date: 20211130
  Receipt Date: 20211130
  Transmission Date: 20220303
  Serious: No
  Sender: FDA-Public Use
  Company Number: US-AMNEAL PHARMACEUTICALS-2021-AMRX-03565

PATIENT

DRUGS (1)
  1. ESTRADIOL TRANSDERMAL SYSTEM [Suspect]
     Active Substance: ESTRADIOL
     Indication: Product used for unknown indication
     Dosage: UNK
     Route: 062

REACTIONS (7)
  - Therapeutic response shortened [Unknown]
  - Autonomic nervous system imbalance [Unknown]
  - Tremor [Unknown]
  - Headache [Unknown]
  - Hot flush [Unknown]
  - Nausea [Unknown]
  - Product substitution issue [Unknown]
